FAERS Safety Report 21920372 (Version 1)
Quarter: 2023Q1

REPORT INFORMATION
  Report Type: Spontaneous
  Country: BE (occurrence: BE)
  Receive Date: 20230127
  Receipt Date: 20230127
  Transmission Date: 20230417
  Serious: Yes (Other)
  Sender: FDA-Public Use
  Company Number: BE-FreseniusKabi-FK202300517

PATIENT
  Age: 79 Year
  Sex: Female
  Weight: 50.5 kg

DRUGS (2)
  1. PACLITAXEL [Suspect]
     Active Substance: PACLITAXEL
     Dosage: 117 MG, WEEKLY
     Dates: start: 20221206, end: 20230111
  2. CARBOPLATIN [Concomitant]
     Active Substance: CARBOPLATIN
     Indication: Lung adenocarcinoma
     Dosage: 125 MG, WEEKLY

REACTIONS (4)
  - Oxygen saturation decreased [Recovered/Resolved]
  - Hypersensitivity [Recovered/Resolved]
  - Bronchospasm [Recovered/Resolved]
  - Back pain [Recovered/Resolved]

NARRATIVE: CASE EVENT DATE: 20230111
